FAERS Safety Report 4971031-8 (Version None)
Quarter: 2006Q2

REPORT INFORMATION
  Report Type: 
  Country: None (occurrence: None)
  Receive Date: 20060411
  Receipt Date: 20060411
  Transmission Date: 20061013
  Serious: Yes (Hospitalization)
  Sender: FDA-Public Use
  Company Number: None

PATIENT
  Age: 71 Year
  Sex: Male
  Weight: 107.2 kg

DRUGS (2)
  1. GENTAMICIN [Suspect]
     Indication: ENDOCARDITIS
     Dosage: 100MG Q24H IV BOLUS
     Route: 040
     Dates: start: 20060328, end: 20060405
  2. PENICILLIN [Suspect]
     Indication: ENDOCARDITIS
     Dosage: 2 MU Q4H IV BOLUS
     Route: 040
     Dates: start: 20060328

REACTIONS (2)
  - DRUG LEVEL INCREASED [None]
  - RENAL FAILURE ACUTE [None]
